FAERS Safety Report 18739679 (Version 1)
Quarter: 2021Q1

REPORT INFORMATION
  Report Type: Report from Study
  Country: CA (occurrence: CA)
  Receive Date: 20210114
  Receipt Date: 20210114
  Transmission Date: 20210419
  Serious: Yes (Other)
  Sender: FDA-Public Use
  Company Number: CA-JNJFOC-20210115620

PATIENT
  Age: 16 Year
  Sex: Male
  Weight: 75.1 kg

DRUGS (1)
  1. REMICADE [Suspect]
     Active Substance: INFLIXIMAB
     Indication: CROHN^S DISEASE
     Route: 042
     Dates: start: 20180920

REACTIONS (10)
  - Staphylococcal infection [Unknown]
  - Acne [Not Recovered/Not Resolved]
  - Rash [Unknown]
  - Off label use [Unknown]
  - Skin discolouration [Unknown]
  - Hyperaesthesia [Unknown]
  - Skin induration [Unknown]
  - Abdominal pain [Unknown]
  - Arthralgia [Unknown]
  - Incorrect drug administration rate [Unknown]

NARRATIVE: CASE EVENT DATE: 202101
